FAERS Safety Report 4766048-2 (Version None)
Quarter: 2005Q3

REPORT INFORMATION
  Report Type: 
  Country: None (occurrence: None)
  Receive Date: 20050912
  Receipt Date: 20050908
  Transmission Date: 20060218
  Serious: Yes (Hospitalization)
  Sender: FDA-Public Use
  Company Number: FR-GLAXOSMITHKLINE-B0393271A

PATIENT
  Age: 19 Year
  Sex: Female

DRUGS (2)
  1. AUGMENTIN '125' [Suspect]
     Dosage: 1UNIT SINGLE DOSE
     Route: 042
     Dates: start: 20050731, end: 20050731
  2. VENOFER [Suspect]
     Dosage: 200MG SINGLE DOSE
     Route: 042
     Dates: start: 20050731, end: 20050731

REACTIONS (3)
  - CHILLS [None]
  - DIZZINESS [None]
  - PYREXIA [None]
